FAERS Safety Report 14190838 (Version 2)
Quarter: 2018Q2

REPORT INFORMATION
  Report Type: Report from Study
  Country: AR (occurrence: AR)
  Receive Date: 20171115
  Receipt Date: 20180601
  Transmission Date: 20180711
  Serious: Yes (Death, Hospitalization)
  Sender: FDA-Public Use
  Company Number: AR-ASTELLAS-2017US044925

PATIENT
  Age: 78 Year
  Sex: Male
  Weight: 64 kg

DRUGS (1)
  1. ENZALUTAMIDE [Suspect]
     Active Substance: ENZALUTAMIDE
     Indication: PROSTATE CANCER
     Route: 048
     Dates: start: 20141008, end: 20171110

REACTIONS (2)
  - Anuria [Fatal]
  - Dehydration [Recovered/Resolved]

NARRATIVE: CASE EVENT DATE: 20171018
